FAERS Safety Report 6181047-4 (Version None)
Quarter: 2009Q2

REPORT INFORMATION
  Report Type: 
  Country: None (occurrence: None)
  Receive Date: 20090504
  Receipt Date: 20090504
  Transmission Date: 20091009
  Serious: No
  Sender: FDA-Public Use
  Company Number: None

PATIENT
  Age: 43 Year
  Sex: Male

DRUGS (1)
  1. FENTANYL TRANSDERMAL SYSTEM [Suspect]
     Indication: LUMBAR RADICULOPATHY
     Dosage: 25MG Q 72 HOURS TRANSDERMAL
     Route: 062
     Dates: start: 20090316, end: 20090316

REACTIONS (1)
  - APPLICATION SITE DISCOLOURATION [None]
